FAERS Safety Report 6612146-8 (Version None)
Quarter: 2010Q1

REPORT INFORMATION
  Report Type: 
  Country: None (occurrence: None)
  Receive Date: 20100303
  Receipt Date: 20100225
  Transmission Date: 20100710
  Serious: Yes (Other)
  Sender: FDA-Public Use
  Company Number: US-RB-025915-09

PATIENT
  Sex: Male

DRUGS (5)
  1. SUBOXONE [Suspect]
     Route: 060
     Dates: start: 20091103
  2. AMBIEN [Concomitant]
     Indication: INSOMNIA
     Dosage: DOSING INFORMATION UNKNOWN
     Route: 048
     Dates: start: 20090501
  3. AMBIEN [Concomitant]
     Dosage: DOSING DETAILS UNKNOWN
     Route: 065
     Dates: start: 20091101, end: 20091101
  4. METOPROLOL TARTRATE [Concomitant]
     Indication: CARDIAC DISORDER
     Dosage: DOSING INFORMATION UNKNOWN
     Route: 065
  5. CYMBALTA [Suspect]
     Indication: DRUG USE FOR UNKNOWN INDICATION
     Dosage: DOSING DETAILS UNKNOWN
     Route: 065
     Dates: start: 20091101, end: 20091101

REACTIONS (3)
  - HALLUCINATION [None]
  - INSOMNIA [None]
  - YELLOW SKIN [None]
